FAERS Safety Report 10665569 (Version 2)
Quarter: 2015Q1

REPORT INFORMATION
  Report Type: Spontaneous
  Country: GB (occurrence: GB)
  Receive Date: 20141219
  Receipt Date: 20150106
  Transmission Date: 20150720
  Serious: Yes (Hospitalization)
  Sender: FDA-Public Use
  Company Number: PHFR2014GB008585

PATIENT
  Age: 19 Year
  Sex: Female

DRUGS (2)
  1. CLOZARIL [Suspect]
     Active Substance: CLOZAPINE
     Indication: SCHIZOPHRENIA
     Dosage: UNK
     Route: 048
     Dates: start: 20130802
  2. CLOZARIL [Suspect]
     Active Substance: CLOZAPINE
     Dosage: UNK
     Route: 048
     Dates: start: 20141211, end: 20141227

REACTIONS (4)
  - White blood cell count increased [Recovered/Resolved]
  - Infection [Unknown]
  - Neutrophil count increased [Recovered/Resolved]
  - Intentional self-injury [Unknown]

NARRATIVE: CASE EVENT DATE: 20140204
